FAERS Safety Report 20990468 (Version 4)
Quarter: 2022Q3

REPORT INFORMATION
  Report Type: Spontaneous
  Country: FR (occurrence: FR)
  Receive Date: 20220622
  Receipt Date: 20220829
  Transmission Date: 20221026
  Serious: No
  Sender: FDA-Public Use
  Company Number: FR-JNJFOC-20220611627

PATIENT
  Age: 4 Decade
  Sex: Male

DRUGS (2)
  1. SIMPONI [Suspect]
     Active Substance: GOLIMUMAB
     Indication: Spondylitis
     Dosage: 50.00 MG / 0.50 ML
     Route: 058
  2. SIMPONI [Suspect]
     Active Substance: GOLIMUMAB
     Route: 058

REACTIONS (8)
  - Needle issue [Unknown]
  - Injection site injury [Unknown]
  - Underdose [Unknown]
  - Product quality issue [Unknown]
  - Accidental exposure to product [Unknown]
  - Injection site pain [Unknown]
  - Spondylitis [Unknown]
  - Product dose omission issue [Unknown]

NARRATIVE: CASE EVENT DATE: 20220101
